FAERS Safety Report 6223683-2 (Version None)
Quarter: 2009Q2

REPORT INFORMATION
  Report Type: 
  Country: None (occurrence: None)
  Receive Date: 20090611
  Receipt Date: 20090306
  Transmission Date: 20091009
  Serious: No
  Sender: FDA-Public Use
  Company Number: US-ABBOTT-08P-163-0484360-00

PATIENT
  Sex: Female
  Weight: 56.75 kg

DRUGS (19)
  1. HUMIRA [Suspect]
     Indication: CROHN'S DISEASE
     Route: 058
     Dates: start: 20080801, end: 20081028
  2. HUMIRA [Suspect]
     Route: 058
     Dates: start: 20081028
  3. VICODIN [Concomitant]
     Indication: PAIN
     Route: 048
  4. VICODIN [Concomitant]
     Route: 048
  5. BENTYL [Concomitant]
     Indication: GASTRIC DISORDER
     Route: 048
  6. NEURONTIN [Concomitant]
     Indication: CROHN'S DISEASE
     Route: 048
  7. LOMOTIL [Concomitant]
     Indication: CROHN'S DISEASE
     Dosage: 4 -2.5 MILLIGRAM TABLETS
     Route: 048
  8. FLAGYL [Concomitant]
     Indication: DRUG USE FOR UNKNOWN INDICATION
     Route: 048
  9. LISINOPRIL [Concomitant]
     Indication: HEADACHE
     Route: 048
  10. OMEPRAZOLE [Concomitant]
     Indication: GASTRIC DISORDER
     Route: 048
  11. MAGNESIUM SULFATE [Concomitant]
     Indication: DRUG USE FOR UNKNOWN INDICATION
     Route: 048
  12. ACIDOPHILUS [Concomitant]
     Indication: DRUG USE FOR UNKNOWN INDICATION
     Route: 048
  13. DIAZEPAM [Concomitant]
     Indication: RELAXATION THERAPY
     Route: 048
  14. ZOLOFT [Concomitant]
     Indication: DEPRESSION
     Route: 048
  15. CLARITIN [Concomitant]
     Indication: HYPERSENSITIVITY
     Route: 048
  16. ALEGRA D [Concomitant]
     Indication: HYPERSENSITIVITY
     Route: 048
  17. ALBUTEROL [Concomitant]
     Indication: ASTHMA
     Route: 055
  18. MAXOL [Concomitant]
     Indication: MIGRAINE
     Route: 048
  19. IMITREX [Concomitant]
     Indication: MIGRAINE
     Route: 048

REACTIONS (3)
  - CROHN'S DISEASE [None]
  - DRUG INEFFECTIVE [None]
  - STRESS [None]
